FAERS Safety Report 19962966 (Version 1)
Quarter: 2021Q4

REPORT INFORMATION
  Report Type: Spontaneous
  Country: JP (occurrence: JP)
  Receive Date: 20211018
  Receipt Date: 20211018
  Transmission Date: 20220303
  Serious: Yes (Hospitalization, Other)
  Sender: FDA-Public Use
  Company Number: JP-STRIDES ARCOLAB LIMITED-2021SP028515

PATIENT
  Age: 31 Year
  Sex: Female

DRUGS (12)
  1. TACROLIMUS [Suspect]
     Active Substance: TACROLIMUS
     Indication: Systemic lupus erythematosus
     Dosage: 3 MILLIGRAM PER DAY FOR 4 YEARS
     Route: 065
  2. PREDNISOLONE [Suspect]
     Active Substance: PREDNISOLONE
     Indication: Systemic lupus erythematosus
     Dosage: 5 MILLIGRAM PER DAY FOR 11 YEARS
     Route: 065
  3. WARFARIN [Suspect]
     Active Substance: WARFARIN
     Indication: Antiphospholipid syndrome
     Dosage: UNK
     Route: 048
  4. WARFARIN [Suspect]
     Active Substance: WARFARIN
     Dosage: UNK, AN ADJUSTED DOSE OF WARFARIN
     Route: 065
  5. WARFARIN [Suspect]
     Active Substance: WARFARIN
     Dosage: 2.5 MILLIGRAM/DAY
     Route: 065
  6. WARFARIN [Suspect]
     Active Substance: WARFARIN
     Dosage: UNK, CONTROLLING DOSE
     Route: 065
  7. HEPARIN CALCIUM [Suspect]
     Active Substance: HEPARIN CALCIUM
     Indication: Antiphospholipid syndrome
     Dosage: 10000 INTERNATIONAL UNIT/DAY
     Route: 058
  8. HEPARIN CALCIUM [Suspect]
     Active Substance: HEPARIN CALCIUM
     Indication: Thrombosis prophylaxis
     Dosage: UNK, CONTINOUS HEPARIN
     Route: 042
  9. HEPARIN CALCIUM [Suspect]
     Active Substance: HEPARIN CALCIUM
     Dosage: 10000 IU/DAY, INTRAVENOUS UNFRACTIONED HEPARIN
     Route: 042
  10. ASPIRIN [Suspect]
     Active Substance: ASPIRIN
     Indication: Antiphospholipid syndrome
     Dosage: 100 MILLIGRAM PER DAY (LOW-DOSE)
     Route: 065
  11. OXYTOCIN [Suspect]
     Active Substance: OXYTOCIN
     Indication: Labour induction
     Dosage: UNK INJECTIONS
     Route: 042
  12. OXYTOCIN [Suspect]
     Active Substance: OXYTOCIN
     Indication: Uterine atony
     Dosage: 10 INTERNATIONAL UNIT
     Route: 065

REACTIONS (5)
  - Postpartum haemorrhage [Recovered/Resolved]
  - Uterine atony [Unknown]
  - Placenta accreta [Unknown]
  - Amniotic cavity infection [Unknown]
  - Maternal exposure during pregnancy [Unknown]
